FAERS Safety Report 18516645 (Version 1)
Quarter: 2020Q4

REPORT INFORMATION
  Report Type: Spontaneous
  Country: US (occurrence: US)
  Receive Date: 20201118
  Receipt Date: 20201118
  Transmission Date: 20210114
  Serious: No
  Sender: FDA-Public Use
  Company Number: None

PATIENT
  Age: 37 Year
  Sex: Female
  Weight: 180 kg

DRUGS (2)
  1. SKYRIZI [Suspect]
     Active Substance: RISANKIZUMAB-RZAA
     Indication: PSORIASIS
     Dosage: ?          OTHER FREQUENCY:WEEK 0 AND 4;?
     Route: 058
     Dates: start: 20201010, end: 20201107
  2. SKYRIZI [Concomitant]
     Active Substance: RISANKIZUMAB-RZAA
     Dates: start: 20201010, end: 20201107

REACTIONS (5)
  - Throat irritation [None]
  - Erythema [None]
  - Pharyngeal swelling [None]
  - Headache [None]
  - Urticaria [None]

NARRATIVE: CASE EVENT DATE: 20201107
